FAERS Safety Report 24230707 (Version 2)
Quarter: 2025Q1

REPORT INFORMATION
  Report Type: Report from Study
  Country: US (occurrence: US)
  Receive Date: 20240821
  Receipt Date: 20250327
  Transmission Date: 20250409
  Serious: Yes (Other)
  Sender: UCB
  Company Number: US-UCBSA-2024041337

PATIENT
  Sex: Male

DRUGS (1)
  1. CERTOLIZUMAB PEGOL [Suspect]
     Active Substance: CERTOLIZUMAB PEGOL
     Indication: Crohn^s disease
     Dosage: 400 MILLIGRAM, EV 2 WEEKS(QOW)
     Route: 064
     Dates: start: 2023, end: 20240125

REACTIONS (10)
  - Premature baby [Unknown]
  - Small for dates baby [Unknown]
  - Seizure [Recovered/Resolved]
  - Umbilical cord around neck [Unknown]
  - Thrombosis [Unknown]
  - Respiratory syncytial virus infection [Recovered/Resolved]
  - Asthma [Unknown]
  - Eczema [Unknown]
  - Dermatitis diaper [Unknown]
  - Maternal exposure during pregnancy [Unknown]

NARRATIVE: CASE EVENT DATE: 20230101
